FAERS Safety Report 13759438 (Version 3)
Quarter: 2017Q3

REPORT INFORMATION
  Report Type: Spontaneous
  Country: DE (occurrence: DE)
  Receive Date: 20170717
  Receipt Date: 20170810
  Transmission Date: 20171127
  Serious: Yes (Death, Life-Threatening, Other)
  Sender: FDA-Public Use
  Company Number: DE-BRISTOL-MYERS SQUIBB COMPANY-BMS-2017-061383

PATIENT
  Age: 88 Year
  Sex: Female
  Weight: 60 kg

DRUGS (7)
  1. ELIQUIS [Suspect]
     Active Substance: APIXABAN
     Indication: CEREBROVASCULAR ACCIDENT PROPHYLAXIS
     Dosage: 2.5 MG, BID
     Route: 048
     Dates: start: 20170607
  2. CODEIN [Concomitant]
     Active Substance: CODEINE
     Indication: INFLUENZA
     Dosage: 1 DF, UNK
     Route: 065
     Dates: start: 20170308
  3. CINEOLE [Concomitant]
     Active Substance: EUCALYPTOL
     Indication: PRODUCT USED FOR UNKNOWN INDICATION
     Dosage: UNK UNK, QID
     Route: 065
  4. FLECAINIDE ACETATE. [Concomitant]
     Active Substance: FLECAINIDE ACETATE
     Indication: CARDIAC DISORDER
     Dosage: UNK, BID
     Route: 065
  5. TORASEMIDE [Concomitant]
     Active Substance: TORSEMIDE
     Indication: POLYURIA
     Dosage: UNK, QD
     Route: 065
  6. OMEPRAZOLE. [Concomitant]
     Active Substance: OMEPRAZOLE
     Indication: GASTRIC DISORDER
     Dosage: UNK, QD
     Route: 065
  7. METOPROLOL. [Concomitant]
     Active Substance: METOPROLOL
     Indication: BLOOD PRESSURE MEASUREMENT
     Dosage: UNK, BID
     Route: 065

REACTIONS (14)
  - Fatigue [Unknown]
  - Somnolence [Unknown]
  - Death [Fatal]
  - Cardiac arrest [Unknown]
  - Left ventricular failure [Unknown]
  - Pleural effusion [Unknown]
  - Vascular operation [Unknown]
  - Respiratory arrest [Unknown]
  - Acute kidney injury [Unknown]
  - Acute respiratory failure [Unknown]
  - Leriche syndrome [Unknown]
  - Hypotonia [Unknown]
  - Arterial rupture [Unknown]
  - Seizure [Unknown]

NARRATIVE: CASE EVENT DATE: 20170610
